FAERS Safety Report 6717634-1 (Version None)
Quarter: 2010Q2

REPORT INFORMATION
  Report Type: 
  Country: None (occurrence: None)
  Receive Date: 20100507
  Receipt Date: 20100507
  Transmission Date: 20101027
  Serious: Yes (Other)
  Sender: FDA-Public Use
  Company Number: None

PATIENT
  Sex: Male
  Weight: 65.7716 kg

DRUGS (1)
  1. EVOXAC [Suspect]
     Indication: DRY MOUTH
     Dosage: 30MG 3 TIMES A DAY PO
     Route: 048
     Dates: start: 20091103, end: 20091106

REACTIONS (2)
  - DELUSION [None]
  - HALLUCINATION [None]
